FAERS Safety Report 9228293 (Version 2)
Quarter: 2013Q2

REPORT INFORMATION
  Report Type: Report from Study
  Country: IT (occurrence: IT)
  Receive Date: 20130412
  Receipt Date: 20130618
  Transmission Date: 20140414
  Serious: Yes (Death, Other)
  Sender: FDA-Public Use
  Company Number: IT-ROCHE-1211406

PATIENT
  Sex: 0

DRUGS (3)
  1. ALTEPLASE [Suspect]
     Indication: ISCHAEMIC STROKE
     Route: 042
  2. LABETALOL [Concomitant]
     Route: 042
  3. URAPIDIL [Concomitant]
     Route: 042

REACTIONS (9)
  - Cerebral infarction [Fatal]
  - Drug ineffective [Fatal]
  - Pleurisy [Fatal]
  - Sudden death [Fatal]
  - Acute myocardial infarction [Fatal]
  - Cerebral haemorrhage [Unknown]
  - Cerebral haemorrhage [Unknown]
  - Haematuria [Unknown]
  - Mouth haemorrhage [Unknown]
